FAERS Safety Report 9404107 (Version 1)
Quarter: 2013Q3

REPORT INFORMATION
  Report Type: Report from Study
  Country: US (occurrence: US)
  Receive Date: 20130717
  Receipt Date: 20130717
  Transmission Date: 20140515
  Serious: Yes (Hospitalization)
  Sender: FDA-Public Use
  Company Number: US-BIOGENIDEC-2012BI007431

PATIENT
  Age: 51 Year
  Sex: Male
  Weight: 121 kg

DRUGS (12)
  1. BG00012 [Suspect]
     Indication: MULTIPLE SCLEROSIS
     Route: 048
     Dates: start: 20101019
  2. ACETAMINOPHEN-CODEINE [Concomitant]
     Route: 048
  3. XANAX [Concomitant]
     Route: 048
  4. SYMBICORT [Concomitant]
  5. LASIX [Concomitant]
     Route: 048
  6. NEURONTIN [Concomitant]
     Route: 048
  7. AMARYL [Concomitant]
     Route: 048
  8. COZAAR [Concomitant]
     Route: 048
  9. TRILEPTAL [Concomitant]
     Route: 048
  10. PAXIL [Concomitant]
     Route: 048
  11. JANUMET [Concomitant]
     Route: 048
  12. VALTREX [Concomitant]
     Route: 048
     Dates: start: 201202, end: 201202

REACTIONS (2)
  - Herpes zoster [Recovered/Resolved]
  - Cellulitis [Recovered/Resolved]
